FAERS Safety Report 6174041-0 (Version None)
Quarter: 2009Q2

REPORT INFORMATION
  Report Type: 
  Country: None (occurrence: None)
  Receive Date: 20090430
  Receipt Date: 20080229
  Transmission Date: 20091009
  Serious: No
  Sender: FDA-Public Use
  Company Number: US-ASTRAZENECA-2008UW04197

PATIENT
  Age: 46 Year
  Sex: Male

DRUGS (5)
  1. NEXIUM [Suspect]
     Indication: GASTROOESOPHAGEAL REFLUX DISEASE
     Route: 048
     Dates: start: 20080201
  2. CIPROFLOXACIN HCL [Suspect]
  3. BLOOD PRESSURE MEDICATIONS [Concomitant]
  4. DIOVAN [Concomitant]
  5. SINGULAIR [Concomitant]

REACTIONS (3)
  - ILL-DEFINED DISORDER [None]
  - NAUSEA [None]
  - VOMITING [None]
